FAERS Safety Report 14242687 (Version 2)
Quarter: 2017Q4

REPORT INFORMATION
  Report Type: Spontaneous
  Country: JP (occurrence: JP)
  Receive Date: 20171201
  Receipt Date: 20171220
  Transmission Date: 20180321
  Serious: Yes (Hospitalization, Other)
  Sender: FDA-Public Use
  Company Number: JP-009507513-1708JPN000752J

PATIENT
  Age: 84 Year
  Sex: Male
  Weight: 52 kg

DRUGS (11)
  1. ZETIA [Suspect]
     Active Substance: EZETIMIBE
     Indication: HYPERCHOLESTEROLAEMIA
     Dosage: 10 MG, QD, AFTER DINNER
     Route: 048
  2. LANSOPRAZOLE OD [Concomitant]
     Active Substance: LANSOPRAZOLE
     Dosage: 15 MG, QD, AFTER BREAKFAST
     Route: 048
  3. ENSURE [Concomitant]
     Active Substance: AMINO ACIDS\DEXTROSE\ELECTROLYTES NOS\SOYBEAN OIL\VITAMINS
     Dosage: 250 ML, QD
     Route: 048
  4. NASONEX [Concomitant]
     Active Substance: MOMETASONE FUROATE
     Dosage: UNK, QD, 2 SPRAYS IN EACH NASAL CAVITY
     Route: 045
  5. CRESTOR [Concomitant]
     Active Substance: ROSUVASTATIN CALCIUM
     Dosage: 2.5 MG, QD, AFTER DINNER
     Route: 048
  6. VOALLA [Concomitant]
     Dosage: UNK, BID, (IN THE MORNING AND EVENING) ON ITCHY AREA
     Route: 061
  7. BAYASPIRIN [Concomitant]
     Active Substance: ASPIRIN
     Dosage: 100 MG, QD, AFTER BREAKFAST
     Route: 048
  8. BETAHISTINE MESYLATE [Concomitant]
     Active Substance: BETAHISTINE MESILATE
     Dosage: 6 MG, TID, AFTER EACH MEAL
     Route: 048
  9. ANTEBATE:CREAM [Concomitant]
     Dosage: UNK UNK, BID, (IN THE MORNING AND EVENING) ON THE LEFT THIGH, REDNESS AND ITCHY AREA
     Route: 061
  10. PANTETHINE [Concomitant]
     Active Substance: PANTETHINE
     Dosage: 3 G, TID, AFTER EACH MEAL
     Route: 048
  11. TSUMURA MASHININGAN EXTRACT GRANULES FOR ETHICAL USE [Concomitant]
     Dosage: 7.5 G, TID, 2 HOURS AFTER EACH MEAL
     Route: 048

REACTIONS (2)
  - Pneumonia aspiration [Recovered/Resolved]
  - Rhabdomyolysis [Unknown]

NARRATIVE: CASE EVENT DATE: 20171011
